FAERS Safety Report 19961558 (Version 1)
Quarter: 2021Q4

REPORT INFORMATION
  Report Type: Spontaneous
  Country: DK (occurrence: DK)
  Receive Date: 20211017
  Receipt Date: 20211017
  Transmission Date: 20220303
  Serious: Yes (Death, Hospitalization, Other)
  Sender: FDA-Public Use
  Company Number: DK-AMGEN-DNKSP2021157809

PATIENT
  Age: 43 Year
  Sex: Male

DRUGS (5)
  1. FILGRASTIM [Suspect]
     Active Substance: FILGRASTIM
     Indication: Prophylaxis
     Route: 065
  2. CYTARABINE [Concomitant]
     Active Substance: CYTARABINE
  3. FLUDARABINE [Concomitant]
     Active Substance: FLUDARABINE PHOSPHATE
  4. IDARUBICIN [Concomitant]
     Active Substance: IDARUBICIN
  5. HYDROXYUREA [Concomitant]
     Active Substance: HYDROXYUREA

REACTIONS (7)
  - Condition aggravated [Fatal]
  - Cytopenia [Unknown]
  - Pyrexia [Unknown]
  - Bone pain [Unknown]
  - Fatigue [Unknown]
  - Blood lactate dehydrogenase increased [Unknown]
  - Therapeutic response shortened [Unknown]
